FAERS Safety Report 17476317 (Version 1)
Quarter: 2020Q1

REPORT INFORMATION
  Report Type: Report from Study
  Country: US (occurrence: US)
  Receive Date: 20200228
  Receipt Date: 20200228
  Transmission Date: 20200409
  Serious: Yes (Other)
  Sender: FDA-Public Use
  Company Number: US-JNJFOC-20190938436

PATIENT

DRUGS (1)
  1. STELARA [Suspect]
     Active Substance: USTEKINUMAB
     Indication: CROHN^S DISEASE
     Route: 042
     Dates: start: 20180223

REACTIONS (4)
  - Blindness [Unknown]
  - Eye irritation [Unknown]
  - Eye pain [Unknown]
  - Lacrimation increased [Unknown]

NARRATIVE: CASE EVENT DATE: 201908
